FAERS Safety Report 8975091 (Version 1)
Quarter: 2012Q4

REPORT INFORMATION
  Report Type: 
  Country: DE (occurrence: DE)
  Receive Date: 20121219
  Receipt Date: 20121219
  Transmission Date: 20130627
  Serious: Yes (Other)
  Sender: FDA-Public Use
  Company Number: DE-BAXTER-2012BAX028402

PATIENT

DRUGS (11)
  1. CYCLOPHOSPHAMID [Suspect]
     Indication: B-CELL LYMPHOMA
     Dosage: CYCLE 1
  2. CYCLOPHOSPHAMID [Suspect]
     Dosage: CYCLE 2 AND 3
  3. CYCLOPHOSPHAMID [Suspect]
     Dosage: CYCLE 4
  4. ETOPOSIDE [Suspect]
     Indication: B-CELL LYMPHOMA
     Dosage: CYCLE 1
  5. ETOPOSIDE [Suspect]
     Dosage: CYCLE 2 AND 3
  6. ETOPOSIDE [Suspect]
     Dosage: CYCLE 4
  7. DOXORUBICIN [Suspect]
     Indication: B-CELL LYMPHOMA
     Dosage: ALL FOUR CYCLES
  8. VINCRISTINE [Suspect]
     Indication: B-CELL LYMPHOMA
     Dosage: ALL FOUR CYCLES
  9. PREDNISONE [Suspect]
     Indication: B-CELL LYMPHOMA
     Dosage: ALL FOUR CYCLES
  10. RITUXIMAB [Suspect]
     Indication: B-CELL LYMPHOMA
     Dosage: DAYS 0, 14, 36, 56, 77 AND 98
  11. GRANULOCYTE COLONY-STIMULATING FACTOR [Concomitant]
     Indication: DRUG USE FOR UNKNOWN INDICATION
     Dosage: 2X5 MCG/KG

REACTIONS (1)
  - Neoplasm [Unknown]
